FAERS Safety Report 7280434-0 (Version None)
Quarter: 2011Q1

REPORT INFORMATION
  Report Type: 
  Country: None (occurrence: None)
  Receive Date: 20110208
  Receipt Date: 20110126
  Transmission Date: 20110831
  Serious: Yes (Hospitalization, Other)
  Sender: FDA-Public Use
  Company Number: GB-ROCHE-486335

PATIENT
  Sex: Female
  Weight: 68.2 kg

DRUGS (20)
  1. ASPIRIN [Concomitant]
     Dosage: DRUG NAME REPORTED AS ASPRIN EC
     Dates: start: 20051124
  2. DILTIAZEM HYDROCHLORIDE [Concomitant]
     Dates: start: 20051124
  3. AMITRIPTYLINE HCL [Concomitant]
  4. MANEVAC [Concomitant]
  5. PARACETAMOL [Concomitant]
  6. DIHYDROCODEINE TARTRATE [Concomitant]
  7. METFORMIN HYDROCHLORIDE [Concomitant]
  8. SALMETEROL [Concomitant]
     Dosage: FREQUENCY REPORTED AS BD
  9. AMITRIPTYLINE HCL [Concomitant]
  10. TEMAZEPAM [Concomitant]
  11. GLICLAZIDE [Concomitant]
  12. ATORVASTATIN [Concomitant]
     Dosage: FREQUENCY REPORTED: BD
     Dates: start: 20040925
  13. GABAPENTIN [Concomitant]
  14. ALBUTEROL [Concomitant]
  15. FRUSEMIDE [Concomitant]
     Dates: start: 20061125
  16. CLONIDINE HYDROCHLORIDE [Concomitant]
  17. BECLOMETHASONE DIPROPIONATE [Concomitant]
  18. TRASTUZUMAB [Suspect]
     Indication: BREAST CANCER
     Dosage: LOADING DOSE.
     Route: 042
     Dates: start: 20040618, end: 20040618
  19. TRASTUZUMAB [Suspect]
     Dosage: MAINTENANCE DOSE. THERAPY PERMANENTLY DISCONTINUED; FORM: FLUID.
     Route: 042
     Dates: start: 20040709, end: 20050615
  20. METFORMIN HCL [Concomitant]
     Dosage: FREQUENCY REPORTED AS BD

REACTIONS (2)
  - CARDIAC FAILURE CONGESTIVE [None]
  - ANGINA PECTORIS [None]
